FAERS Safety Report 17468929 (Version 1)
Quarter: 2020Q1

REPORT INFORMATION
  Report Type: Spontaneous
  Country: US (occurrence: US)
  Receive Date: 20200217
  Receipt Date: 20200217
  Transmission Date: 20200409
  Serious: No
  Sender: FDA-Public Use
  Company Number: None

PATIENT
  Age: 75 Year
  Sex: Male

DRUGS (1)
  1. ZYTIGA [Suspect]
     Active Substance: ABIRATERONE ACETATE
     Route: 048
     Dates: start: 201910

REACTIONS (7)
  - Mobility decreased [None]
  - Dyspnoea [None]
  - Heart rate abnormal [None]
  - Asthenia [None]
  - Myalgia [None]
  - Inadequate analgesia [None]
  - Fatigue [None]

NARRATIVE: CASE EVENT DATE: 20200217
